APPROVED DRUG PRODUCT: NYSTATIN
Active Ingredient: NYSTATIN
Strength: 500,000 UNITS
Dosage Form/Route: TABLET;ORAL
Application: A062838 | Product #001
Applicant: SUN PHARMACEUTICAL INDUSTRIES INC
Approved: Dec 22, 1988 | RLD: No | RS: No | Type: DISCN